FAERS Safety Report 9415374 (Version 1)
Quarter: 2013Q3

REPORT INFORMATION
  Report Type: Spontaneous
  Country: US (occurrence: US)
  Receive Date: 20130723
  Receipt Date: 20130723
  Transmission Date: 20140515
  Serious: No
  Sender: FDA-Public Use
  Company Number: US-009507513-1307USA005910

PATIENT
  Age: 51 Year
  Sex: Female

DRUGS (1)
  1. DEXAMETHASONE [Suspect]
     Dosage: UNK
     Route: 065

REACTIONS (1)
  - Herpes simplex meningoencephalitis [Recovered/Resolved with Sequelae]
